FAERS Safety Report 10908572 (Version 1)
Quarter: 2015Q1

REPORT INFORMATION
  Report Type: Not Available
  Country: ES (occurrence: ES)
  Receive Date: 20150312
  Receipt Date: 20150312
  Transmission Date: 20150721
  Serious: Yes (Other)
  Sender: FDA-Public Use
  Company Number: ES-MUNDIPHARMA DS AND PHARMACOVIGILANCE-GBR-2015-0026114

PATIENT
  Age: 89 Year
  Sex: Female

DRUGS (5)
  1. TARGIN 5MG/2.5MG COMPRIMIDOS DE LIBERACION PROLONGADA [Suspect]
     Active Substance: NALOXONE HYDROCHLORIDE\OXYCODONE HYDROCHLORIDE
     Indication: DUODENITIS
     Dosage: 2 TABLET, UNK
     Route: 048
     Dates: start: 20150115, end: 20150129
  2. RAMIPRIL. [Concomitant]
     Active Substance: RAMIPRIL
     Indication: HYPERTENSION
     Dosage: 1 DF, DAILY
     Route: 048
  3. OPIREN [Concomitant]
     Active Substance: LANSOPRAZOLE
     Indication: REFLUX GASTRITIS
     Dosage: 15 MG, DAILY
     Route: 048
  4. AMLODIPINE [Concomitant]
     Active Substance: AMLODIPINE BESYLATE
     Indication: HYPERTENSION
     Dosage: 5 MG, DAILY
     Route: 048
  5. ALLOPURINOL. [Concomitant]
     Active Substance: ALLOPURINOL
     Indication: HYPERURICAEMIA
     Dosage: 300 MG, DAILY
     Route: 048

REACTIONS (3)
  - Hallucination [Recovered/Resolved]
  - Restlessness [Recovered/Resolved]
  - Insomnia [Recovered/Resolved]

NARRATIVE: CASE EVENT DATE: 20150117
